FAERS Safety Report 17398506 (Version 10)
Quarter: 2022Q2

REPORT INFORMATION
  Report Type: Report from Study
  Country: CO (occurrence: CO)
  Receive Date: 20200210
  Receipt Date: 20220601
  Transmission Date: 20220721
  Serious: Yes (Other)
  Sender: FDA-Public Use
  Company Number: NVSC2020CO033354

PATIENT
  Sex: Female
  Weight: 64 kg

DRUGS (5)
  1. TASIGNA [Suspect]
     Active Substance: NILOTINIB
     Indication: Chronic myeloid leukaemia
     Dosage: 800 MG, QD (400 MG EVERY 12 HOURS 2 DF DAILY)
     Route: 048
     Dates: start: 20191228
  2. ALUMINUM HYDROXIDE [Concomitant]
     Active Substance: ALUMINUM HYDROXIDE
     Indication: Gastric pH decreased
     Dosage: 03 MONTHS AGO QD (2 SPOONS)
     Route: 048
  3. ALUMINUM HYDROXIDE [Concomitant]
     Active Substance: ALUMINUM HYDROXIDE
     Indication: Dyspepsia
  4. ESOMEPRAZOLE [Concomitant]
     Active Substance: ESOMEPRAZOLE
     Indication: Gastric pH decreased
     Dosage: 20 MG, QD (03 MONTHS AGO)
     Route: 048
  5. ESOMEPRAZOLE [Concomitant]
     Active Substance: ESOMEPRAZOLE
     Indication: Dyspepsia

REACTIONS (20)
  - Choking [Recovered/Resolved]
  - Haemorrhage [Unknown]
  - Philadelphia chromosome positive [Unknown]
  - Headache [Unknown]
  - Malaise [Unknown]
  - COVID-19 [Unknown]
  - Influenza [Recovered/Resolved]
  - Disease complication [Unknown]
  - Auricular swelling [Unknown]
  - Renal disorder [Unknown]
  - White blood cell count increased [Unknown]
  - Chest pain [Unknown]
  - Dysphonia [Recovered/Resolved]
  - Dizziness [Not Recovered/Not Resolved]
  - Platelet count decreased [Unknown]
  - Fatigue [Not Recovered/Not Resolved]
  - Pain [Unknown]
  - Cough [Recovered/Resolved]
  - Product packaging issue [Unknown]
  - Inappropriate schedule of product administration [Unknown]
